FAERS Safety Report 21473046 (Version 1)
Quarter: 2022Q4

REPORT INFORMATION
  Report Type: Spontaneous
  Country: US (occurrence: None)
  Receive Date: 20221017
  Receipt Date: 20221017
  Transmission Date: 20230113
  Serious: Yes (Death)
  Sender: FDA-Public Use
  Company Number: None

PATIENT
  Age: 84 Year
  Sex: Male
  Weight: 63.28 kg

DRUGS (9)
  1. DANAZOL [Suspect]
     Active Substance: DANAZOL
     Indication: Myelofibrosis
     Dosage: FREQUENCY : DAILY;?
     Route: 048
  2. JAKAFI [Concomitant]
     Active Substance: RUXOLITINIB
  3. ELIQUIS [Concomitant]
     Active Substance: APIXABAN
  4. METOPROLOL SUCCINATE [Concomitant]
     Active Substance: METOPROLOL SUCCINATE
  5. PROBIOTICS NOS [Concomitant]
     Active Substance: PROBIOTICS NOS
  6. AMOXICILLIN [Concomitant]
     Active Substance: AMOXICILLIN
  7. NIVESTYM [Concomitant]
     Active Substance: FILGRASTIM-AAFI
  8. PROCRIT [Concomitant]
     Active Substance: ERYTHROPOIETIN
  9. TAMSULOSIN HYDROCHLORIDE [Concomitant]
     Active Substance: TAMSULOSIN HYDROCHLORIDE

REACTIONS (1)
  - Death [None]
